FAERS Safety Report 15169756 (Version 1)
Quarter: 2018Q3

REPORT INFORMATION
  Report Type: Report from Study
  Country: None (occurrence: US)
  Receive Date: 20180720
  Receipt Date: 20180720
  Transmission Date: 20181010
  Serious: Yes (Other)
  Sender: FDA-Public Use
  Company Number: US-BAUSCH-BL-2018-008754

PATIENT
  Sex: Male

DRUGS (3)
  1. SILIQ [Suspect]
     Active Substance: BRODALUMAB
     Indication: PSORIASIS
     Dosage: STRENGTH: 210MG/1.5 ML
     Route: 065
  2. SILIQ [Suspect]
     Active Substance: BRODALUMAB
     Dosage: STRENGTH: 210MG/1.5 ML
     Route: 058
     Dates: start: 2017, end: 201803
  3. SILIQ [Suspect]
     Active Substance: BRODALUMAB
     Dosage: STRENGTH: 210MG/1.5 ML?ONCE EVERY 2 WEEKS Q2WKS
     Route: 058
     Dates: start: 2018

REACTIONS (3)
  - Respiratory tract infection [Recovering/Resolving]
  - Nasopharyngitis [Recovering/Resolving]
  - Inappropriate schedule of drug administration [Unknown]

NARRATIVE: CASE EVENT DATE: 2018
